FAERS Safety Report 16543689 (Version 1)
Quarter: 2019Q3

REPORT INFORMATION
  Report Type: Spontaneous
  Country: TW (occurrence: TW)
  Receive Date: 20190709
  Receipt Date: 20190709
  Transmission Date: 20191004
  Serious: No
  Sender: FDA-Public Use
  Company Number: TW-BEH-2019102874

PATIENT
  Age: 96 Year
  Sex: Female

DRUGS (8)
  1. ALBUMINAR-25 [Suspect]
     Active Substance: ALBUMIN HUMAN
     Dosage: UNK
     Route: 042
     Dates: start: 20190524, end: 20190526
  2. ALBUMINAR-25 [Suspect]
     Active Substance: ALBUMIN HUMAN
     Dosage: UNK
     Route: 042
     Dates: start: 20190416, end: 20190418
  3. ALBUMINAR-25 [Suspect]
     Active Substance: ALBUMIN HUMAN
     Indication: PRODUCT USED FOR UNKNOWN INDICATION
     Dosage: 50 ML, QD
     Route: 042
     Dates: start: 20190509, end: 20190513
  4. ALBUMINAR-25 [Suspect]
     Active Substance: ALBUMIN HUMAN
     Dosage: UNK
     Route: 042
     Dates: start: 20190416, end: 20190416
  5. ALBUMINAR-25 [Suspect]
     Active Substance: ALBUMIN HUMAN
     Dosage: UNK
     Route: 042
     Dates: start: 20190529, end: 20190531
  6. MEROPENEM. [Concomitant]
     Active Substance: MEROPENEM
     Dosage: UNK
     Route: 042
  7. ALBUMINAR-25 [Suspect]
     Active Substance: ALBUMIN HUMAN
     Dosage: UNK
     Route: 042
     Dates: start: 20190612
  8. FUROSEMIDE. [Concomitant]
     Active Substance: FUROSEMIDE
     Route: 042

REACTIONS (3)
  - Infusion site haematoma [Not Recovered/Not Resolved]
  - Injection site extravasation [Unknown]
  - Device use issue [Not Recovered/Not Resolved]

NARRATIVE: CASE EVENT DATE: 20190513
